FAERS Safety Report 7828731-1 (Version None)
Quarter: 2011Q4

REPORT INFORMATION
  Report Type: 
  Country: None (occurrence: None)
  Receive Date: 20111020
  Receipt Date: 20111018
  Transmission Date: 20120403
  Serious: Yes (Hospitalization)
  Sender: FDA-Public Use
  Company Number: FR-BAYER-2011-101316

PATIENT
  Age: 41 Year
  Sex: Male

DRUGS (6)
  1. TEMODAL [Suspect]
     Indication: METASTASES TO LUNG
  2. TEMODAL [Suspect]
     Indication: METASTATIC MALIGNANT MELANOMA
     Dosage: 150 MG/M2 DAILY DOSE, 5 IN 28 DAYS
     Route: 048
     Dates: start: 20110414, end: 20110814
  3. IRBESARTAN [Concomitant]
     Dosage: 150 MG, QD
  4. ZOLMITRIPTAN [Concomitant]
     Dosage: UNK UNK, PRN
  5. NEXAVAR [Suspect]
     Indication: METASTATIC MALIGNANT MELANOMA
     Dosage: 400 MG, BID
     Route: 048
     Dates: start: 20110414, end: 20110814
  6. NEXAVAR [Suspect]
     Indication: METASTASES TO LUNG

REACTIONS (2)
  - HYPERTENSION [None]
  - ISCHAEMIC STROKE [None]
